FAERS Safety Report 15096522 (Version 2)
Quarter: 2018Q3

REPORT INFORMATION
  Report Type: Spontaneous
  Country: IT (occurrence: IT)
  Receive Date: 20180702
  Receipt Date: 20180709
  Transmission Date: 20181010
  Serious: Yes (Other)
  Sender: FDA-Public Use
  Company Number: IT-TEVA-2018-IT-917592

PATIENT
  Age: 81 Year
  Sex: Male

DRUGS (15)
  1. CALCIO CARBONATO E VITAMINA D3 DOC GENERICI 1000 MG + 880 U.I. GRANULA [Concomitant]
     Route: 048
  2. TORVAST 40 MG COMPRESSE RIVESTITE CON FILM [Concomitant]
     Route: 048
  3. ASCRIPTIN [Concomitant]
     Active Substance: ASPIRIN
     Route: 048
  4. KANRENOL? 100 COMPRESSE [Suspect]
     Active Substance: CANRENOATE POTASSIUM
     Indication: HYPERTENSION
     Dosage: 1 DOSAGE FORMS DAILY;
     Route: 048
     Dates: start: 20170101, end: 20180308
  5. STALEVO [Concomitant]
     Active Substance: CARBIDOPA\ENTACAPONE\LEVODOPA
     Route: 048
  6. GLICLAZIDE [Concomitant]
     Active Substance: GLICLAZIDE
     Route: 048
  7. FINASTERIDE. [Concomitant]
     Active Substance: FINASTERIDE
     Route: 048
  8. IPERTEN 20 MG COMPRESSE [Concomitant]
     Route: 048
  9. LURA 0,4 MG CAPSULE RIGIDE A RILASCIO MODIFICATO [Concomitant]
     Route: 048
  10. FUROSEMIDE. [Concomitant]
     Active Substance: FUROSEMIDE
     Route: 048
  11. DIBASE 25.000 U.I./2,5 ML SOLUZIONE ORALE [Concomitant]
     Route: 048
  12. SERTRALINE HYDROCHLORIDE. [Concomitant]
     Active Substance: SERTRALINE HYDROCHLORIDE
     Route: 048
  13. RELVAR ELLIPTA 92 MICROGRAMS/22 MICROGRAMS INHALATION POWDER, PRE?DISP [Concomitant]
     Route: 055
  14. SOTALOL HYDROCHLORIDE. [Suspect]
     Active Substance: SOTALOL HYDROCHLORIDE
     Indication: ATRIAL FIBRILLATION
     Dosage: 160 MILLIGRAM DAILY;
     Route: 048
     Dates: start: 20130101, end: 20180308
  15. NEXIUM 40 MG COMPRESSE GASTRORESISTENTI [Concomitant]
     Route: 048

REACTIONS (2)
  - Hyperkalaemia [Recovered/Resolved]
  - Sinus bradycardia [Recovered/Resolved]

NARRATIVE: CASE EVENT DATE: 20180308
